FAERS Safety Report 9802978 (Version 1)
Quarter: 2014Q1

REPORT INFORMATION
  Report Type: Spontaneous
  Country: FR (occurrence: None)
  Receive Date: 20140102
  Receipt Date: 20140102
  Transmission Date: 20141002
  Serious: Yes (Hospitalization)
  Sender: FDA-Public Use
  Company Number: 1969338

PATIENT
  Age: 73 Year
  Sex: Female

DRUGS (6)
  1. CARBOPLATIN [Suspect]
     Indication: PRODUCT USED FOR UNKNOWN INDICATION
     Route: 042
     Dates: start: 20110210, end: 20110210
  2. TAXOL [Concomitant]
  3. SOLUMEDROL [Concomitant]
  4. POLARAMINE [Concomitant]
  5. ZOPHREN [Concomitant]
  6. AZANTAC [Concomitant]

REACTIONS (2)
  - Cardiac arrest [None]
  - Anaphylactic shock [None]
